FAERS Safety Report 22306413 (Version 4)
Quarter: 2025Q2

REPORT INFORMATION
  Report Type: Report from Study
  Country: IE (occurrence: IE)
  Receive Date: 20230511
  Receipt Date: 20250520
  Transmission Date: 20250717
  Serious: Yes (Hospitalization, Other)
  Sender: NOVARTIS
  Company Number: IE-002147023-NVSC2022IE286044

PATIENT
  Age: 60 Year
  Sex: Male

DRUGS (2)
  1. COSENTYX [Suspect]
     Active Substance: SECUKINUMAB
     Indication: Psoriatic arthropathy
     Dosage: 300 MG, QMO (INJECTION NOS)
     Route: 050
     Dates: start: 20221013
  2. COSENTYX [Suspect]
     Active Substance: SECUKINUMAB
     Dosage: 300 MG, QMO
     Route: 058
     Dates: start: 20221019

REACTIONS (6)
  - Sepsis [Recovering/Resolving]
  - COVID-19 [Recovered/Resolved with Sequelae]
  - Lower respiratory tract infection [Unknown]
  - Illness [Unknown]
  - Gastroenteritis viral [Unknown]
  - Cyst [Unknown]

NARRATIVE: CASE EVENT DATE: 20221107
